FAERS Safety Report 14011448 (Version 1)
Quarter: 2017Q3

REPORT INFORMATION
  Report Type: Spontaneous
  Country: US (occurrence: US)
  Receive Date: 20170926
  Receipt Date: 20170926
  Transmission Date: 20171128
  Serious: Yes (Disabling)
  Sender: FDA-Public Use
  Company Number: None

PATIENT
  Age: 66 Year
  Sex: Female
  Weight: 72 kg

DRUGS (7)
  1. CALCIUM/MAGNESIUM [Concomitant]
     Active Substance: CALCIUM\MAGNESIUM
  2. CRESTOR [Concomitant]
     Active Substance: ROSUVASTATIN CALCIUM
  3. VITAMIN D [Concomitant]
     Active Substance: CHOLECALCIFEROL
  4. VITAMIN B12 [Concomitant]
     Active Substance: CYANOCOBALAMIN
  5. ATENELOL [Suspect]
     Active Substance: ATENOLOL
     Indication: TACHYCARDIA
     Dosage: ?          QUANTITY:1 TABLET(S);OTHER ROUTE:ORAL?
     Dates: start: 20170701, end: 20170920
  6. RAMAPRIL [Concomitant]
  7. METROPROLOL [Concomitant]
     Active Substance: METOPROLOL

REACTIONS (7)
  - Extra dose administered [None]
  - Drug effect decreased [None]
  - Heart rate increased [None]
  - Product substitution issue [None]
  - Electrocardiogram abnormal [None]
  - Tachycardia [None]
  - Drug ineffective [None]

NARRATIVE: CASE EVENT DATE: 20170701
